FAERS Safety Report 11672330 (Version 2)
Quarter: 2015Q4

REPORT INFORMATION
  Report Type: Spontaneous
  Country: IE (occurrence: IE)
  Receive Date: 20151028
  Receipt Date: 20151103
  Transmission Date: 20160304
  Serious: No
  Sender: FDA-Public Use
  Company Number: IE-BEH-2015054966

PATIENT
  Sex: Female

DRUGS (1)
  1. ANTI-D IG [Suspect]
     Active Substance: HUMAN RHO(D) IMMUNE GLOBULIN
     Indication: PROPHYLAXIS

REACTIONS (1)
  - Inappropriate schedule of drug administration [Unknown]
